FAERS Safety Report 15748758 (Version 1)
Quarter: 2018Q4

REPORT INFORMATION
  Report Type: Spontaneous
  Country: US (occurrence: US)
  Receive Date: 20181221
  Receipt Date: 20181221
  Transmission Date: 20190205
  Serious: No
  Sender: FDA-Public Use
  Company Number: US-RECKITT BENCKISER HEALTHCARE INT LIMITED-RB-84108-2018

PATIENT
  Age: 51 Year
  Sex: Female

DRUGS (1)
  1. DELSYM [Suspect]
     Active Substance: DEXTROMETHORPHAN
     Indication: COUGH
     Dosage: 10 ML, BID (AMOUNT USED: 3 OZ)
     Route: 065
     Dates: start: 20180129, end: 20180131

REACTIONS (1)
  - Drug ineffective [Recovered/Resolved]
